FAERS Safety Report 12121748 (Version 1)
Quarter: 2016Q1

REPORT INFORMATION
  Report Type: Spontaneous
  Country: US (occurrence: US)
  Receive Date: 20160226
  Receipt Date: 20160226
  Transmission Date: 20160526
  Serious: No
  Sender: FDA-Public Use
  Company Number: US-ALLERGAN-1206515US

PATIENT
  Sex: Female

DRUGS (2)
  1. REFRESH OPTIVE SENSITIVE [Suspect]
     Active Substance: CARBOXYMETHYLCELLULOSE SODIUM\GLYCERIN
     Dosage: 2 GTT, QD TO BID
     Route: 047
     Dates: start: 2011
  2. REFRESH OPTIVE SENSITIVE [Suspect]
     Active Substance: CARBOXYMETHYLCELLULOSE SODIUM\GLYCERIN
     Indication: CONTACT LENS THERAPY
     Dosage: 2 GTT, QD TO BID
     Route: 047
     Dates: start: 20120301

REACTIONS (3)
  - Drug administration error [Unknown]
  - Foreign body sensation in eyes [Recovered/Resolved]
  - Eye complication associated with device [Recovered/Resolved]
